FAERS Safety Report 16275509 (Version 7)
Quarter: 2019Q4

REPORT INFORMATION
  Report Type: Spontaneous
  Country: US (occurrence: US)
  Receive Date: 20190506
  Receipt Date: 20191015
  Transmission Date: 20200122
  Serious: Yes (Other)
  Sender: FDA-Public Use
  Company Number: PHEH2019US018740

PATIENT
  Age: 75 Year
  Sex: Female

DRUGS (3)
  1. AFINITOR [Suspect]
     Active Substance: EVEROLIMUS
     Indication: RENAL CANCER
     Dosage: 5 MG, QD
     Route: 048
  2. LENVATINIB [Suspect]
     Active Substance: LENVATINIB
     Dosage: 10 MG, QD
     Route: 048
  3. LENVATINIB [Suspect]
     Active Substance: LENVATINIB
     Indication: RENAL CANCER
     Dosage: 10 MG, QD
     Route: 048
     Dates: start: 20171116

REACTIONS (13)
  - Decreased appetite [Unknown]
  - Fatigue [Unknown]
  - Renal impairment [Unknown]
  - Weight increased [Unknown]
  - Blood pressure abnormal [Unknown]
  - Night sweats [Unknown]
  - Allergic cough [Unknown]
  - Dyspnoea [Unknown]
  - Peripheral swelling [Unknown]
  - Diarrhoea [Recovering/Resolving]
  - Joint swelling [Recovered/Resolved]
  - Bronchitis [Unknown]
  - Candida infection [Unknown]

NARRATIVE: CASE EVENT DATE: 201801
